FAERS Safety Report 21569012 (Version 1)
Quarter: 2022Q4

REPORT INFORMATION
  Report Type: Report from Study
  Country: US (occurrence: US)
  Receive Date: 20221108
  Receipt Date: 20221108
  Transmission Date: 20230113
  Serious: Yes (Other)
  Sender: FDA-Public Use
  Company Number: US-ABBVIE-4188674

PATIENT
  Age: 89 Year
  Sex: Female

DRUGS (2)
  1. VENCLEXTA [Suspect]
     Active Substance: VENETOCLAX
     Indication: Product used for unknown indication
     Dosage: STRENGTH- 100 MILLIGRAM
     Route: 048
     Dates: start: 20220902, end: 2022
  2. VENCLEXTA [Suspect]
     Active Substance: VENETOCLAX
     Indication: Product used for unknown indication
     Dosage: AT NIGHT BEFORE BED?STRENGTH- 100 MILLIGRAM
     Route: 048
     Dates: start: 2022

REACTIONS (2)
  - Blood test abnormal [Unknown]
  - Fatigue [Recovering/Resolving]

NARRATIVE: CASE EVENT DATE: 20221005
